FAERS Safety Report 16534359 (Version 3)
Quarter: 2019Q3

REPORT INFORMATION
  Report Type: Spontaneous
  Country: JP (occurrence: JP)
  Receive Date: 20190705
  Receipt Date: 20190801
  Transmission Date: 20191004
  Serious: Yes (Other)
  Sender: FDA-Public Use
  Company Number: JP-TAKEDA-2019TJP014898

PATIENT
  Age: 68 Year
  Sex: Male

DRUGS (2)
  1. ROZEREM [Suspect]
     Active Substance: RAMELTEON
     Indication: SCHIZOPHRENIA
     Dosage: 8 MILLIGRAM, QD
     Route: 050
  2. SYCREST [Suspect]
     Active Substance: ASENAPINE MALEATE
     Indication: PRODUCT USED FOR UNKNOWN INDICATION
     Dosage: UNK
     Route: 065

REACTIONS (3)
  - Schizophrenia [Unknown]
  - Wrong technique in product usage process [Unknown]
  - Product prescribing error [Unknown]
